FAERS Safety Report 15406341 (Version 1)
Quarter: 2018Q3

REPORT INFORMATION
  Report Type: Report from Study
  Country: TR (occurrence: TR)
  Receive Date: 20180920
  Receipt Date: 20180920
  Transmission Date: 20181010
  Serious: Yes (Death, Hospitalization, Other)
  Sender: FDA-Public Use
  Company Number: TR-ACCORD-071740

PATIENT
  Age: 59 Year
  Sex: Female

DRUGS (8)
  1. VALSARTAN. [Concomitant]
     Active Substance: VALSARTAN
  2. METHOTREXATE. [Suspect]
     Active Substance: METHOTREXATE
     Indication: PRODUCT USED FOR UNKNOWN INDICATION
  3. FOLIC ACID. [Concomitant]
     Active Substance: FOLIC ACID
  4. NIFEDIPINE. [Concomitant]
     Active Substance: NIFEDIPINE
  5. METOPROLOL. [Concomitant]
     Active Substance: METOPROLOL
  6. DICLOFENAC [Concomitant]
     Active Substance: DICLOFENAC
  7. CLOPIDOGREL [Concomitant]
     Active Substance: CLOPIDOGREL BISULFATE
  8. LEVOTHYROXINE. [Concomitant]
     Active Substance: LEVOTHYROXINE

REACTIONS (4)
  - Pancytopenia [Fatal]
  - Pyrexia [Fatal]
  - Mucosal inflammation [Fatal]
  - Hepatotoxicity [Fatal]
